FAERS Safety Report 24397481 (Version 1)
Quarter: 2024Q4

REPORT INFORMATION
  Report Type: Spontaneous
  Country: US (occurrence: None)
  Receive Date: 20241003
  Receipt Date: 20241003
  Transmission Date: 20250115
  Serious: Yes (Hospitalization)
  Sender: Public
  Company Number: None

PATIENT
  Age: 81 Year
  Sex: Male
  Weight: 71 kg

DRUGS (1)
  1. HEPARIN SODIUM [Suspect]
     Active Substance: HEPARIN SODIUM
     Indication: Thrombosis prophylaxis
     Dosage: FREQUENCY : 3 TIMES A DAY;?
     Route: 058

REACTIONS (4)
  - Gastrointestinal haemorrhage [None]
  - Rectal haemorrhage [None]
  - Mental status changes [None]
  - Hypotension [None]

NARRATIVE: CASE EVENT DATE: 20240321
